FAERS Safety Report 24944500 (Version 1)
Quarter: 2025Q1

REPORT INFORMATION
  Report Type: Spontaneous
  Country: US (occurrence: US)
  Receive Date: 20250208
  Receipt Date: 20250208
  Transmission Date: 20250408
  Serious: No
  Sender: EPIC PHARM
  Company Number: US-EPICPHARMA-US-2025EPCSPO00072

PATIENT
  Age: 67 Year
  Sex: Female
  Weight: 154 kg

DRUGS (8)
  1. URSODIOL [Suspect]
     Active Substance: URSODIOL
     Indication: Primary biliary cholangitis
     Route: 048
     Dates: start: 2009
  2. CELEXA [Concomitant]
     Active Substance: CITALOPRAM HYDROBROMIDE
     Route: 065
  3. VITAMIN D3 [Concomitant]
     Active Substance: CHOLECALCIFEROL
     Indication: Product used for unknown indication
     Route: 065
  4. LANSOPRAZOLE [Concomitant]
     Active Substance: LANSOPRAZOLE
     Route: 065
  5. CHLORPHENIRAMINE MALEATE [Concomitant]
     Active Substance: CHLORPHENIRAMINE MALEATE
     Route: 065
  6. CETIRIZINE [Concomitant]
     Active Substance: CETIRIZINE HYDROCHLORIDE
     Indication: Product used for unknown indication
     Route: 065
  7. CALCIUM [Concomitant]
     Active Substance: CALCIUM
     Indication: Product used for unknown indication
     Route: 065
  8. ZYRTEC [Concomitant]
     Active Substance: CETIRIZINE HYDROCHLORIDE
     Route: 065
     Dates: start: 2003

REACTIONS (6)
  - Pruritus [Not Recovered/Not Resolved]
  - Skin exfoliation [Not Recovered/Not Resolved]
  - Pigmentation disorder [Not Recovered/Not Resolved]
  - Feeling abnormal [Not Recovered/Not Resolved]
  - Scab [Not Recovered/Not Resolved]
  - Haemorrhage [Not Recovered/Not Resolved]
